FAERS Safety Report 9963296 (Version 1)
Quarter: 2014Q1

REPORT INFORMATION
  Report Type: Report from Study
  Country: US (occurrence: US)
  Receive Date: 20140305
  Receipt Date: 20140305
  Transmission Date: 20141002
  Serious: No
  Sender: FDA-Public Use
  Company Number: US-ABBVIE-13P-163-1117202-00

PATIENT
  Age: 30 Year
  Sex: Male

DRUGS (1)
  1. HUMIRA [Suspect]
     Indication: PSORIASIS
     Dosage: PSORIASIS STARTER KIT. 2ND DOSE SCHEDULED TO BE TAKEN ON 04 JUL 2013.
     Route: 058
     Dates: start: 20130627, end: 20130627

REACTIONS (4)
  - Nausea [Not Recovered/Not Resolved]
  - Injection site erythema [Recovered/Resolved]
  - Pain in extremity [Recovered/Resolved]
  - Vomiting [Not Recovered/Not Resolved]
